FAERS Safety Report 9825005 (Version 1)
Quarter: 2013Q4

REPORT INFORMATION
  Report Type: Spontaneous
  Country: US (occurrence: None)
  Receive Date: 20131025
  Receipt Date: 20131025
  Transmission Date: 20140711
  Serious: Yes (Other)
  Sender: FDA-Public Use
  Company Number: AP356-00053-SPO-US

PATIENT
  Age: 41 Year
  Sex: Female
  Weight: 132 kg

DRUGS (2)
  1. BELVIQ (LORCASERIN HYDROCHLORIDE) [Suspect]
     Indication: WEIGHT DECREASED
     Route: 048
     Dates: start: 20130725, end: 20130802
  2. PHENTERMINE (PHENTERMINE) [Concomitant]

REACTIONS (2)
  - Back pain [None]
  - Headache [None]
